FAERS Safety Report 4545862-2 (Version None)
Quarter: 2005Q1

REPORT INFORMATION
  Report Type: 
  Country: None (occurrence: None)
  Receive Date: 20050103
  Receipt Date: 20041222
  Transmission Date: 20050727
  Serious: Yes (Other)
  Sender: FDA-Public Use
  Company Number: 2004118811

PATIENT
  Age: 62 Year
  Sex: Male

DRUGS (8)
  1. CELEBREX [Suspect]
     Indication: ARTHRITIS
     Dosage: 200 MG (1 IN 1 D), ORAL
     Route: 048
  2. ROFECOXIB [Suspect]
     Indication: ARTHRITIS
  3. HYDROCHOROTHIAZIDE (HYDROCHLOROTHIAZIDE) [Concomitant]
  4. ATENOLOL [Concomitant]
  5. DONEPEZIL HCL [Concomitant]
  6. RABEPRAZOLE SODIUM [Concomitant]
  7. VICODIN [Concomitant]
  8. CANDESARTAN CILEXETIL        (CANDESARTAN CILEXETIL) [Concomitant]

REACTIONS (3)
  - EXOSTOSIS [None]
  - SKIN DISORDER [None]
  - SURGERY [None]
